FAERS Safety Report 7374935-4 (Version None)
Quarter: 2011Q1

REPORT INFORMATION
  Report Type: 
  Country: None (occurrence: None)
  Receive Date: 20110325
  Receipt Date: 20110310
  Transmission Date: 20110831
  Serious: Yes (Hospitalization)
  Sender: FDA-Public Use
  Company Number: PHHY2011JP14903

PATIENT
  Age: 10 Month

DRUGS (1)
  1. DIOVAN [Suspect]
     Dosage: 40 MG,
     Route: 048

REACTIONS (1)
  - ACCIDENTAL EXPOSURE [None]
